FAERS Safety Report 12846365 (Version 1)
Quarter: 2016Q4

REPORT INFORMATION
  Report Type: Report from Study
  Country: US (occurrence: US)
  Receive Date: 20161014
  Receipt Date: 20161014
  Transmission Date: 20170207
  Serious: No
  Sender: FDA-Public Use
  Company Number: GXBR2013US001375

PATIENT
  Sex: Female
  Weight: 72.56 kg

DRUGS (3)
  1. ENOXAPARIN SODIUM. [Suspect]
     Active Substance: ENOXAPARIN SODIUM
     Indication: FACTOR II DEFICIENCY
     Dosage: 40 MG, QD
     Route: 058
     Dates: start: 20130801
  2. ENOXAPARIN SODIUM. [Suspect]
     Active Substance: ENOXAPARIN SODIUM
     Indication: FACTOR II DEFICIENCY
     Dosage: 40 MG, QD
     Route: 058
     Dates: start: 201207, end: 20130731
  3. GLYBURIDE. [Concomitant]
     Active Substance: GLYBURIDE
     Indication: GESTATIONAL DIABETES
     Dosage: 2.5 MG, BID

REACTIONS (1)
  - Maternal exposure during pregnancy [Not Recovered/Not Resolved]
